FAERS Safety Report 4855889-9 (Version None)
Quarter: 2005Q4

REPORT INFORMATION
  Report Type: 
  Country: None (occurrence: None)
  Receive Date: 20051216
  Receipt Date: 20051205
  Transmission Date: 20060501
  Serious: Yes (Life-Threatening)
  Sender: FDA-Public Use
  Company Number: NL-SANOFI-SYNTHELABO-F01200502671

PATIENT
  Sex: Male

DRUGS (5)
  1. OXALIPLATIN [Suspect]
     Indication: COLORECTAL CANCER
     Route: 041
     Dates: start: 20051129, end: 20051129
  2. CAPECITABINE [Suspect]
     Dosage: BID DAYS 1-14 (1250 MG/M2 AFTER CYCLE 6)
     Route: 048
     Dates: start: 20051129
  3. BEVACIZUMAB [Suspect]
     Route: 041
     Dates: start: 20051129, end: 20051129
  4. CETUXIMAB [Suspect]
     Dosage: 400 MG/M2 DAY 1 OF CYCLE 1, THEREAFTER 250 MG/M2 WEEKLY
     Route: 041
     Dates: start: 20051129, end: 20051129
  5. TAVEGIL [Concomitant]
     Indication: PREMEDICATION

REACTIONS (4)
  - ABDOMINAL PAIN [None]
  - ANAPHYLACTIC REACTION [None]
  - CHOLINERGIC SYNDROME [None]
  - CIRCULATORY COLLAPSE [None]
